FAERS Safety Report 11566767 (Version 1)
Quarter: 2015Q3

REPORT INFORMATION
  Report Type: Spontaneous
  Country: US (occurrence: US)
  Receive Date: 20150916
  Receipt Date: 20150916
  Transmission Date: 20151125
  Serious: No
  Sender: FDA-Public Use
  Company Number: US-ELI_LILLY_AND_COMPANY-US200906005352

PATIENT
  Sex: Female

DRUGS (2)
  1. NORVASC /00972401/ [Concomitant]
     Indication: RAYNAUD^S PHENOMENON
     Dosage: 2.5 MG, DAILY (1/D)
  2. FORTEO [Suspect]
     Active Substance: TERIPARATIDE
     Dates: start: 20090601

REACTIONS (5)
  - Injection site bruising [Unknown]
  - Muscle tightness [Unknown]
  - Headache [Unknown]
  - Injection site haemorrhage [Unknown]
  - Dizziness [Unknown]

NARRATIVE: CASE EVENT DATE: 200906
